FAERS Safety Report 12634772 (Version 3)
Quarter: 2016Q3

REPORT INFORMATION
  Report Type: Report from Study
  Country: US (occurrence: US)
  Receive Date: 20160809
  Receipt Date: 20160826
  Transmission Date: 20161109
  Serious: Yes (Death, Hospitalization, Other)
  Sender: FDA-Public Use
  Company Number: US-GILEAD-2016-0227303

PATIENT
  Age: 67 Year
  Sex: Male

DRUGS (1)
  1. AMBRISENTAN [Suspect]
     Active Substance: AMBRISENTAN
     Indication: PULMONARY ARTERIAL HYPERTENSION
     Dosage: 10 MG, UNK
     Route: 065
     Dates: start: 20160407

REACTIONS (6)
  - Oxygen saturation decreased [Unknown]
  - Dyspnoea [Fatal]
  - Respiratory arrest [Fatal]
  - Cardiac death [Fatal]
  - Cardiac disorder [Fatal]
  - Transient ischaemic attack [Unknown]
